FAERS Safety Report 25482877 (Version 3)
Quarter: 2025Q3

REPORT INFORMATION
  Report Type: Spontaneous
  Country: EU (occurrence: EU)
  Receive Date: 20250626
  Receipt Date: 20250926
  Transmission Date: 20251020
  Serious: Yes (Other)
  Sender: ALIMERA
  Company Number: EU-ALIMERA SCIENCES EUROPE LIMITED-FR-A16013-25-000218

PATIENT
  Age: 68 Year
  Sex: Male

DRUGS (1)
  1. ILUVIEN [Suspect]
     Active Substance: FLUOCINOLONE ACETONIDE
     Indication: Diabetic retinal oedema
     Dosage: 0.25 MICROGRAM, QD - RIGHT EYE
     Route: 031
     Dates: start: 20240111

REACTIONS (3)
  - Optic nerve injury [Unknown]
  - Intraocular pressure increased [Unknown]
  - Trabeculectomy [Recovered/Resolved]

NARRATIVE: CASE EVENT DATE: 20240930
